FAERS Safety Report 8577354-8 (Version None)
Quarter: 2012Q3

REPORT INFORMATION
  Report Type: 
  Country: None (occurrence: None)
  Receive Date: 20120807
  Receipt Date: 20120413
  Transmission Date: 20120928
  Serious: Yes (Other)
  Sender: FDA-Public Use
  Company Number: CHPA2012US016430

PATIENT

DRUGS (1)
  1. EXCEDRIN (MIGRAINE) [Suspect]
     Dosage: UNK, UNK
     Route: 048

REACTIONS (1)
  - DRUG DEPENDENCE [None]
